FAERS Safety Report 12290112 (Version 1)
Quarter: 2016Q2

REPORT INFORMATION
  Report Type: Spontaneous
  Country: None (occurrence: None)
  Receive Date: 20160420
  Receipt Date: 20160420
  Transmission Date: 20160815
  Serious: No
  Sender: FDA-Public Use
  Company Number: None

PATIENT
  Age: 38 Year
  Sex: Female

DRUGS (1)
  1. PROGESTERONE INJ 50MG/ML [Suspect]
     Active Substance: PROGESTERONE
     Indication: INFERTILITY FEMALE

REACTIONS (1)
  - Reaction to drug excipients [None]

NARRATIVE: CASE EVENT DATE: 20160419
